FAERS Safety Report 4630175-0 (Version None)
Quarter: 2005Q2

REPORT INFORMATION
  Report Type: 
  Country: None (occurrence: None)
  Receive Date: 20050406
  Receipt Date: 20050301
  Transmission Date: 20051028
  Serious: Yes (Death, Hospitalization)
  Sender: FDA-Public Use
  Company Number: FR-SANOFI-SYNTHELABO-F01200500356

PATIENT
  Age: 75 Year
  Sex: Male

DRUGS (5)
  1. OXALIPLATIN - SOLUTION - 100 MG/M2 [Suspect]
     Indication: COLORECTAL CANCER METASTATIC
     Dosage: 200 MG Q2W INTRAVENOUS NOS
     Route: 042
     Dates: start: 20050124, end: 20050124
  2. FLUOROURACIL - SOLUTION - 3000 MG/M2 [Suspect]
     Dosage: 6000 MG Q2W INTRAVENOUS NOS
     Route: 042
     Dates: start: 20050124, end: 20050124
  3. LEUCOVORIN - SOLUTION - 400 MG/M2 [Suspect]
     Dosage: 800 MG Q2W INTRAVENOUS NOS
     Route: 042
     Dates: start: 20050124, end: 20050124
  4. GLUCOPHAGE [Concomitant]
  5. AMARYL [Concomitant]

REACTIONS (7)
  - ASPIRATION BRONCHIAL [None]
  - CARDIAC FAILURE [None]
  - DISEASE PROGRESSION [None]
  - GENERAL PHYSICAL HEALTH DETERIORATION [None]
  - LIVER DISORDER [None]
  - LUNG DISORDER [None]
  - LUNG INFECTION [None]
